FAERS Safety Report 8796111 (Version 4)
Quarter: 2016Q1

REPORT INFORMATION
  Report Type: Spontaneous
  Country: IT (occurrence: IT)
  Receive Date: 20120919
  Receipt Date: 20160216
  Transmission Date: 20160526
  Serious: Yes (Hospitalization, Other)
  Sender: FDA-Public Use
  Company Number: IT-BRISTOL-MYERS SQUIBB COMPANY-16948812

PATIENT
  Age: 64 Year
  Sex: Male

DRUGS (8)
  1. GEMCITABINE [Suspect]
     Active Substance: GEMCITABINE\GEMCITABINE HYDROCHLORIDE
     Indication: LUNG ADENOCARCINOMA
     Dosage: 1000MG/MQ
     Route: 042
     Dates: start: 20120712, end: 20120712
  2. CARBOPLATIN. [Suspect]
     Active Substance: CARBOPLATIN
     Indication: LUNG ADENOCARCINOMA
     Dosage: 400MCG/MQ
     Route: 042
     Dates: start: 20120712, end: 20120712
  3. FRAGMIN [Concomitant]
     Active Substance: DALTEPARIN SODIUM
     Indication: PRODUCT USED FOR UNKNOWN INDICATION
     Route: 065
  4. ORAMORPH [Concomitant]
     Active Substance: MORPHINE SULFATE
     Indication: PRODUCT USED FOR UNKNOWN INDICATION
     Route: 065
  5. OXIVENT [Concomitant]
     Active Substance: OXITROPIUM BROMIDE
     Indication: INHALATION THERAPY
     Dosage: 1,5MG/ML
     Route: 065
  6. TACHIDOL [Concomitant]
     Active Substance: ACETAMINOPHEN\CODEINE PHOSPHATE
     Indication: PRODUCT USED FOR UNKNOWN INDICATION
     Route: 065
  7. MEDROL [Concomitant]
     Active Substance: METHYLPREDNISOLONE
     Indication: PRODUCT USED FOR UNKNOWN INDICATION
     Route: 065
  8. CLENIL [Concomitant]
     Active Substance: BECLOMETHASONE DIPROPIONATE
     Indication: INHALATION THERAPY
     Dosage: 0.8MG/2ML
     Route: 065

REACTIONS (3)
  - Product use issue [Unknown]
  - Hepatitis acute [Unknown]
  - Pancreatic enzyme abnormality [Unknown]

NARRATIVE: CASE EVENT DATE: 20120713
